FAERS Safety Report 10508624 (Version 2)
Quarter: 2014Q4

REPORT INFORMATION
  Report Type: Spontaneous
  Country: US (occurrence: US)
  Receive Date: 20141009
  Receipt Date: 20141009
  Transmission Date: 20150528
  Serious: Yes (Other)
  Sender: FDA-Public Use
  Company Number: US-ELI_LILLY_AND_COMPANY-US201402000287

PATIENT
  Age: 60 Year
  Sex: Male
  Weight: 68.03 kg

DRUGS (16)
  1. LANTUS [Concomitant]
     Active Substance: INSULIN GLARGINE
  2. PREDNISONE. [Concomitant]
     Active Substance: PREDNISONE
  3. CELLCEPT [Concomitant]
     Active Substance: MYCOPHENOLATE MOFETIL\MYCOPHENOLATE MOFETIL HYDROCHLORIDE
  4. BUMEX [Concomitant]
     Active Substance: BUMETANIDE
  5. TACROLIMUS. [Concomitant]
     Active Substance: TACROLIMUS
  6. CLONIDINE. [Concomitant]
     Active Substance: CLONIDINE
  7. TOPROL XL [Concomitant]
     Active Substance: METOPROLOL SUCCINATE
  8. LIPITOR [Concomitant]
     Active Substance: ATORVASTATIN CALCIUM
  9. SPIRIVA [Concomitant]
     Active Substance: TIOTROPIUM BROMIDE MONOHYDRATE
  10. GLUCAGON. [Suspect]
     Active Substance: GLUCAGON
     Indication: HYPOGLYCAEMIA
     Dosage: 1 MG, PRN
     Route: 065
  11. HUMALOG [Suspect]
     Active Substance: INSULIN LISPRO
     Indication: TYPE 1 DIABETES MELLITUS
     Dosage: UNK UNK, TID
     Route: 058
  12. ZETIA [Concomitant]
     Active Substance: EZETIMIBE
  13. MINOXIDIL. [Concomitant]
     Active Substance: MINOXIDIL
  14. NEURONTIN [Concomitant]
     Active Substance: GABAPENTIN
  15. FOSAMAX [Concomitant]
     Active Substance: ALENDRONATE SODIUM
  16. ASA [Concomitant]
     Active Substance: ASPIRIN

REACTIONS (3)
  - Diabetes mellitus inadequate control [Unknown]
  - Hypoglycaemic unconsciousness [Recovered/Resolved]
  - Needle issue [Recovered/Resolved]

NARRATIVE: CASE EVENT DATE: 20140103
